FAERS Safety Report 19833842 (Version 1)
Quarter: 2021Q3

REPORT INFORMATION
  Report Type: Spontaneous
  Country: US (occurrence: US)
  Receive Date: 20210915
  Receipt Date: 20210915
  Transmission Date: 20211014
  Serious: Yes (Hospitalization)
  Sender: FDA-Public Use
  Company Number: US-SA-2021SA302787

PATIENT
  Sex: Male

DRUGS (2)
  1. DUPIXENT [Suspect]
     Active Substance: DUPILUMAB
     Indication: ASTHMA
     Dosage: 200 MG, QOW
     Dates: start: 2018
  2. MUCINEX [Concomitant]
     Active Substance: GUAIFENESIN

REACTIONS (3)
  - Dyspnoea [Unknown]
  - Eye discharge [Unknown]
  - Eyelid margin crusting [Unknown]
